FAERS Safety Report 22281989 (Version 1)
Quarter: 2023Q2

REPORT INFORMATION
  Report Type: Report from Study
  Country: US (occurrence: US)
  Receive Date: 20230504
  Receipt Date: 20230504
  Transmission Date: 20230722
  Serious: No
  Sender: FDA-Public Use
  Company Number: US-002147023-NVSC2023US101514

PATIENT
  Sex: Male
  Weight: 126.98 kg

DRUGS (5)
  1. CICLOPIROX [Suspect]
     Active Substance: CICLOPIROX
     Indication: Hidradenitis
     Dosage: 8 %
     Route: 061
  2. TRIAMCINOLONE [Suspect]
     Active Substance: TRIAMCINOLONE
     Indication: Hidradenitis
     Dosage: 0.1 %
     Route: 061
  3. CLINDAMYCIN [Suspect]
     Active Substance: CLINDAMYCIN
     Indication: Hidradenitis
     Dosage: 1.2 %
     Route: 061
  4. DOXYCYCLINE [Suspect]
     Active Substance: DOXYCYCLINE
     Indication: Hidradenitis
     Dosage: 100 MG
     Route: 048
  5. TERBINAFINE [Suspect]
     Active Substance: TERBINAFINE
     Indication: Hidradenitis
     Dosage: 250 MG
     Route: 048

REACTIONS (3)
  - Nodule [Unknown]
  - Macule [Unknown]
  - Treatment failure [Unknown]
